FAERS Safety Report 6615796-8 (Version None)
Quarter: 2010Q1

REPORT INFORMATION
  Report Type: 
  Country: None (occurrence: None)
  Receive Date: 20100305
  Receipt Date: 20100222
  Transmission Date: 20100710
  Serious: Yes (Other)
  Sender: FDA-Public Use
  Company Number: US-JNJFOC-20100301085

PATIENT
  Sex: Male

DRUGS (1)
  1. RENOVA 0.02% [Suspect]
     Indication: ACNE
     Route: 061

REACTIONS (3)
  - HERPES VIRUS INFECTION [None]
  - INCORRECT DOSE ADMINISTERED [None]
  - SKIN IRRITATION [None]
